FAERS Safety Report 5995438-5 (Version None)
Quarter: 2008Q4

REPORT INFORMATION
  Report Type: 
  Country: None (occurrence: None)
  Receive Date: 20081212
  Receipt Date: 20080926
  Transmission Date: 20090506
  Serious: No
  Sender: FDA-Public Use
  Company Number: US-ABBOTT-08P-163-0478902-00

PATIENT
  Sex: Female
  Weight: 49.94 kg

DRUGS (5)
  1. HUMIRA [Suspect]
     Indication: PSORIASIS
     Route: 058
     Dates: start: 20070101
  2. ESCITALOPRAM OXALATE [Concomitant]
     Indication: DEPRESSION
     Route: 048
  3. CALCIUM-SANDOZ [Concomitant]
     Indication: MINERAL SUPPLEMENTATION
     Route: 048
  4. DOXYCYCLINE [Concomitant]
     Indication: INFECTION
     Route: 048
     Dates: start: 20080801
  5. UNSPECIFIED OINTMENTS [Concomitant]
     Indication: PSORIASIS
     Route: 061

REACTIONS (4)
  - DISORIENTATION [None]
  - DIZZINESS [None]
  - FEELING ABNORMAL [None]
  - PARAESTHESIA [None]
